FAERS Safety Report 7329924-2 (Version None)
Quarter: 2011Q1

REPORT INFORMATION
  Report Type: 
  Country: None (occurrence: None)
  Receive Date: 20110303
  Receipt Date: 20110228
  Transmission Date: 20110831
  Serious: Yes (Life-Threatening, Other)
  Sender: FDA-Public Use
  Company Number: CA-ABBOTT-11P-028-0708260-00

PATIENT
  Sex: Female
  Weight: 77.18 kg

DRUGS (4)
  1. VOLTAREN [Suspect]
     Indication: INFLAMMATION
     Route: 048
     Dates: start: 20080101, end: 20110123
  2. PERCOCET [Concomitant]
     Indication: PAIN
     Route: 058
     Dates: start: 20000101
  3. HUMIRA [Suspect]
     Indication: ANKYLOSING SPONDYLITIS
     Route: 058
     Dates: start: 20081001
  4. FLEXERIL [Concomitant]
     Indication: PAIN
     Route: 048
     Dates: start: 20000101

REACTIONS (4)
  - ANAPHYLACTIC REACTION [None]
  - DYSPNOEA [None]
  - COUGH [None]
  - EAR PRURITUS [None]
